FAERS Safety Report 21904348 (Version 2)
Quarter: 2023Q1

REPORT INFORMATION
  Report Type: Spontaneous
  Country: JP (occurrence: JP)
  Receive Date: 20230124
  Receipt Date: 20230209
  Transmission Date: 20230417
  Serious: Yes (Hospitalization)
  Sender: FDA-Public Use
  Company Number: JP-TEVA-2023-JP-2848784

PATIENT
  Age: 55 Year
  Sex: Female

DRUGS (5)
  1. LEVOFLOXACIN [Suspect]
     Active Substance: LEVOFLOXACIN
     Indication: Pneumonia
     Route: 065
  2. LEVOFLOXACIN [Suspect]
     Active Substance: LEVOFLOXACIN
     Indication: Bronchitis
  3. DUPILUMAB [Suspect]
     Active Substance: DUPILUMAB
     Indication: Chronic eosinophilic rhinosinusitis
     Route: 065
  4. INDACATEROL ACETATE/GLYCOPYRRONIUM BROMIDE/HIGH-DOSE MOMETASONE [Concomitant]
     Indication: Product used for unknown indication
     Dosage: RECEIVED FOR PROLONGED PERIOD
     Route: 055
  5. MONTELUKAST [Concomitant]
     Active Substance: MONTELUKAST SODIUM
     Indication: Product used for unknown indication
     Dosage: RECEIVED FOR PROLONGED PERIOD
     Route: 065

REACTIONS (5)
  - Drug ineffective [Unknown]
  - Eosinophilic pneumonia [Recovering/Resolving]
  - Leukocytosis [Recovering/Resolving]
  - Eosinophilia [Recovering/Resolving]
  - C-reactive protein increased [Recovering/Resolving]
